FAERS Safety Report 6899958-0 (Version None)
Quarter: 2010Q3

REPORT INFORMATION
  Report Type: 
  Country: None (occurrence: None)
  Receive Date: 20100803
  Receipt Date: 20100726
  Transmission Date: 20110219
  Serious: Yes (Hospitalization)
  Sender: FDA-Public Use
  Company Number: US-NOVOPROD-310892

PATIENT
  Sex: Male
  Weight: 86.168 kg

DRUGS (6)
  1. NOVOLOG MIX 70/30 [Suspect]
     Indication: DIABETES MELLITUS
     Dosage: 42 IU, QD (12 IU AM, 12 IU AFTERNOON, 18 IU PM)
     Route: 058
  2. NOVOLOG MIX 70/30 [Suspect]
     Dosage: 42 IU, QD (12 IU AM, 12 IU AFTERNOON, 18 IU PM)
     Route: 058
  3. NOVOLOG [Suspect]
     Indication: DIABETES MELLITUS
     Dosage: UNKNOWN
     Route: 058
     Dates: end: 20100614
  4. NOVOLOG [Suspect]
     Dosage: 7 IU, QD
     Route: 058
     Dates: start: 20100626, end: 20100630
  5. JANUVIA [Concomitant]
     Indication: DIABETES MELLITUS
     Dosage: 100 MG, QD
     Route: 048
  6. JANUVIA [Concomitant]
     Dosage: 50 MG, QD
     Route: 048

REACTIONS (4)
  - BLOOD GLUCOSE INCREASED [None]
  - INJECTION SITE PAIN [None]
  - RENAL FAILURE [None]
  - WEIGHT DECREASED [None]
